FAERS Safety Report 6766200-0 (Version None)
Quarter: 2010Q2

REPORT INFORMATION
  Report Type: 
  Country: None (occurrence: None)
  Receive Date: 20100611
  Receipt Date: 20100602
  Transmission Date: 20101027
  Serious: Yes (Other)
  Sender: FDA-Public Use
  Company Number: GB-PFIZER INC-2010069588

PATIENT
  Age: 68 Year
  Sex: Female

DRUGS (1)
  1. ARTHROTEC [Suspect]
     Dosage: 1 DF, 3X/DAY
     Dates: start: 20100601

REACTIONS (1)
  - RESTLESS LEGS SYNDROME [None]
